FAERS Safety Report 18906935 (Version 1)
Quarter: 2021Q1

REPORT INFORMATION
  Report Type: Spontaneous
  Country: FR (occurrence: FR)
  Receive Date: 20210217
  Receipt Date: 20210217
  Transmission Date: 20210420
  Serious: Yes (Other)
  Sender: FDA-Public Use
  Company Number: FR-SA-2021SA046603

PATIENT
  Age: 59 Year
  Sex: Female

DRUGS (2)
  1. LOVENOX [Suspect]
     Active Substance: ENOXAPARIN SODIUM
     Indication: FOOT OPERATION
     Route: 058
     Dates: start: 20210114, end: 20210127
  2. EXTRANASE [Concomitant]
     Active Substance: BROMELAINS

REACTIONS (3)
  - Rash maculo-papular [Unknown]
  - Pruritus [Unknown]
  - Rash [Unknown]

NARRATIVE: CASE EVENT DATE: 20210126
